FAERS Safety Report 6331483-8 (Version None)
Quarter: 2009Q3

REPORT INFORMATION
  Report Type: 
  Country: None (occurrence: None)
  Receive Date: 20090827
  Receipt Date: 20090818
  Transmission Date: 20100115
  Serious: Yes (Other)
  Sender: FDA-Public Use
  Company Number: BR-ABBOTT-09P-020-0591283-00

PATIENT
  Sex: Female
  Weight: 50 kg

DRUGS (6)
  1. HUMIRA [Suspect]
     Indication: RHEUMATOID ARTHRITIS
     Route: 058
     Dates: start: 20060801
  2. HUMIRA [Suspect]
     Dates: end: 20090708
  3. LEFLUNOMIDE [Concomitant]
     Indication: RHEUMATOID ARTHRITIS
     Route: 048
  4. PREDNISOLONE [Concomitant]
     Indication: INFLAMMATION
     Dosage: 2 - 5MG TABLETS A DAY, DAILY DOSE 10 MG
     Route: 048
  5. KETOPROFEN [Concomitant]
     Indication: ANTIINFLAMMATORY THERAPY
     Route: 048
  6. NEOSALDINA [Concomitant]
     Indication: MIGRAINE

REACTIONS (2)
  - HEADACHE [None]
  - MIGRAINE [None]
